FAERS Safety Report 12970445 (Version 1)
Quarter: 2016Q4

REPORT INFORMATION
  Report Type: Spontaneous
  Country: US (occurrence: US)
  Receive Date: 20161122
  Receipt Date: 20161122
  Transmission Date: 20170207
  Serious: No
  Sender: FDA-Public Use
  Company Number: None

PATIENT
  Age: 68 Year
  Sex: Female

DRUGS (3)
  1. EPCLUSA [Suspect]
     Active Substance: SOFOSBUVIR\VELPATASVIR
     Indication: CHRONIC HEPATITIS C
  2. RIBASPHERE [Concomitant]
     Active Substance: RIBAVIRIN
  3. EPCLUSA [Suspect]
     Active Substance: SOFOSBUVIR\VELPATASVIR
     Indication: HEPATIC CIRRHOSIS

REACTIONS (7)
  - Palpitations [None]
  - Dry skin [None]
  - Influenza like illness [None]
  - Anxiety [None]
  - Nausea [None]
  - Hot flush [None]
  - Hypertension [None]

NARRATIVE: CASE EVENT DATE: 20161122
